FAERS Safety Report 7524505-X (Version None)
Quarter: 2011Q2

REPORT INFORMATION
  Report Type: 
  Country: None (occurrence: None)
  Receive Date: 20110606
  Receipt Date: 20110516
  Transmission Date: 20111010
  Serious: Yes (Hospitalization, Other)
  Sender: FDA-Public Use
  Company Number: US-BAYER-2011-018486

PATIENT
  Age: 18 Year
  Sex: Female
  Weight: 68.934 kg

DRUGS (13)
  1. YASMIN [Suspect]
     Indication: OVARIAN CYST
  2. PAXIL [Concomitant]
  3. MELATONIN [Concomitant]
  4. DRYSOL [Concomitant]
  5. CONTRACEPTIVES NOS [Concomitant]
  6. YAZ [Suspect]
     Indication: OVARIAN CYST
  7. ACETAMINOPHEN AND OXYCODONE HCL [Concomitant]
  8. ORTHO-CEPT [Concomitant]
  9. YAZ [Suspect]
     Indication: ACNE
     Dosage: UNK
  10. YASMIN [Suspect]
     Indication: ACNE
     Dosage: UNK
     Dates: start: 20070409, end: 20081001
  11. SEROQUEL [Concomitant]
  12. PAROXETINE [Concomitant]
  13. LEVONORGESTREL + ETHINYL ESTRADIOL [Concomitant]

REACTIONS (3)
  - CHOLECYSTECTOMY [None]
  - CHOLECYSTITIS CHRONIC [None]
  - INJURY [None]
